FAERS Safety Report 17536455 (Version 1)
Quarter: 2020Q1

REPORT INFORMATION
  Report Type: Spontaneous
  Country: US (occurrence: US)
  Receive Date: 20200304
  Receipt Date: 20200304
  Transmission Date: 20200409
  Serious: Yes (Hospitalization)
  Sender: FDA-Public Use
  Company Number: None

PATIENT
  Age: 63 Year
  Sex: Female
  Weight: 64 kg

DRUGS (2)
  1. DOXIL [Suspect]
     Active Substance: DOXORUBICIN HYDROCHLORIDE
     Dates: end: 20200115
  2. BEVACIZUMAB (RHUMAB VEGF) [Concomitant]
     Active Substance: BEVACIZUMAB
     Dates: end: 20190924

REACTIONS (4)
  - Cardiac failure [None]
  - Pleural effusion [None]
  - Anaemia [None]
  - Pulmonary oedema [None]

NARRATIVE: CASE EVENT DATE: 20200224
